FAERS Safety Report 6393977-9 (Version None)
Quarter: 2009Q4

REPORT INFORMATION
  Report Type: 
  Country: None (occurrence: None)
  Receive Date: 20091008
  Receipt Date: 20090604
  Transmission Date: 20100525
  Serious: Yes (Other)
  Sender: FDA-Public Use
  Company Number: US-BRISTOL-MYERS SQUIBB COMPANY-14649156

PATIENT
  Age: 62 Year
  Sex: Female

DRUGS (7)
  1. MEGACE [Suspect]
     Indication: DECREASED APPETITE
     Route: 048
     Dates: start: 20090520
  2. DECADRON [Concomitant]
  3. SYNTHROID [Concomitant]
  4. KEPPRA [Concomitant]
  5. TRAZODONE HCL [Concomitant]
  6. DIFLUCAN [Concomitant]
     Dosage: 2 DOSES
  7. RADIATION THERAPY [Concomitant]
     Indication: SKIN CANCER

REACTIONS (1)
  - INTRACRANIAL VENOUS SINUS THROMBOSIS [None]
